FAERS Safety Report 25281404 (Version 2)
Quarter: 2025Q2

REPORT INFORMATION
  Report Type: Spontaneous
  Country: US (occurrence: US)
  Receive Date: 20250508
  Receipt Date: 20250520
  Transmission Date: 20250716
  Serious: Yes (Other)
  Sender: TEVA
  Company Number: US-TEVA-VS-3327352

PATIENT
  Age: 70 Year
  Sex: Male

DRUGS (4)
  1. IMATINIB [Suspect]
     Active Substance: IMATINIB
     Indication: Gastrointestinal stromal tumour
     Route: 065
  2. REGORAFENIB [Suspect]
     Active Substance: REGORAFENIB
     Indication: Gastrointestinal stromal tumour
     Route: 065
  3. RIPRETINIB [Suspect]
     Active Substance: RIPRETINIB
     Indication: Gastrointestinal stromal tumour
     Route: 065
  4. SUNITINIB [Suspect]
     Active Substance: SUNITINIB
     Indication: Gastrointestinal stromal tumour
     Route: 065

REACTIONS (2)
  - Oesophageal papilloma [Unknown]
  - Hiatus hernia [Unknown]
